FAERS Safety Report 6224354-9 (Version None)
Quarter: 2009Q2

REPORT INFORMATION
  Report Type: 
  Country: None (occurrence: None)
  Receive Date: 20090612
  Receipt Date: 20090317
  Transmission Date: 20091009
  Serious: No
  Sender: FDA-Public Use
  Company Number: US-ABBOTT-09P-163-0563039-00

PATIENT
  Sex: Male
  Weight: 99.88 kg

DRUGS (6)
  1. HUMIRA [Suspect]
     Indication: PSORIASIS
     Route: 058
     Dates: start: 20090220, end: 20090220
  2. HUMIRA [Suspect]
     Indication: PSORIATIC ARTHROPATHY
     Route: 058
     Dates: start: 20090227, end: 20090227
  3. VICODIN [Concomitant]
     Indication: PSORIATIC ARTHROPATHY
  4. LISINOPRIL [Concomitant]
     Indication: HYPERTENSION
  5. SIMVASTATIN [Concomitant]
     Indication: BLOOD CHOLESTEROL INCREASED
  6. ADVIL [Concomitant]
     Indication: PSORIATIC ARTHROPATHY

REACTIONS (7)
  - ANOREXIA [None]
  - DIARRHOEA [None]
  - DYSURIA [None]
  - FATIGUE [None]
  - HEADACHE [None]
  - THIRST [None]
  - WEIGHT DECREASED [None]
